FAERS Safety Report 13942949 (Version 1)
Quarter: 2017Q3

REPORT INFORMATION
  Report Type: Spontaneous
  Country: US (occurrence: None)
  Receive Date: 20170907
  Receipt Date: 20170907
  Transmission Date: 20171128
  Serious: Yes (Hospitalization)
  Sender: FDA-Public Use
  Company Number: None

PATIENT
  Age: 66 Year
  Sex: Male
  Weight: 70.17 kg

DRUGS (2)
  1. IOPAMIDOL [Suspect]
     Active Substance: IOPAMIDOL
     Indication: IMAGING PROCEDURE
     Route: 042
     Dates: start: 20170825, end: 20170825
  2. DIPHENHYDRAMINE. [Suspect]
     Active Substance: DIPHENHYDRAMINE
     Indication: PREMEDICATION
     Route: 042
     Dates: start: 20170825, end: 20170825

REACTIONS (5)
  - Hypertension [None]
  - Myoclonus [None]
  - Contrast media reaction [None]
  - Restless legs syndrome [None]
  - Confusional state [None]

NARRATIVE: CASE EVENT DATE: 20170825
